FAERS Safety Report 6195555-3 (Version None)
Quarter: 2009Q2

REPORT INFORMATION
  Report Type: 
  Country: None (occurrence: None)
  Receive Date: 20090519
  Receipt Date: 20090512
  Transmission Date: 20091009
  Serious: Yes (Other)
  Sender: FDA-Public Use
  Company Number: PHHY2009DE18587

PATIENT
  Sex: Female

DRUGS (3)
  1. RASILEZ [Suspect]
     Dosage: UNK
     Dates: start: 20090427, end: 20090506
  2. TRAMADOL HCL [Concomitant]
  3. BETA BLOCKING AGENTS [Concomitant]

REACTIONS (2)
  - BLOOD CREATININE INCREASED [None]
  - RENAL FAILURE [None]
